FAERS Safety Report 12826597 (Version 1)
Quarter: 2016Q4

REPORT INFORMATION
  Report Type: Spontaneous
  Country: US (occurrence: US)
  Receive Date: 20161007
  Receipt Date: 20161007
  Transmission Date: 20170207
  Serious: No
  Sender: FDA-Public Use
  Company Number: US-WATSON-2016-05271

PATIENT
  Age: 42 Year
  Sex: Male

DRUGS (4)
  1. FENTANYL-50 (WATSON LABORATORIES) [Suspect]
     Active Substance: FENTANYL
     Indication: BACK PAIN
     Dosage: 50 MCG/HR, CHANGED PATCH EVERY 3 DAYS
     Route: 062
  2. PROPRANOLOL [Concomitant]
     Active Substance: PROPRANOLOL\PROPRANOLOL HYDROCHLORIDE
     Indication: BLOOD PRESSURE MEASUREMENT
     Dosage: UNK, UNKNOWN
     Route: 065
  3. FENTANYL-75 (WATSON LABORATORIES) [Suspect]
     Active Substance: FENTANYL
     Indication: BACK PAIN
     Dosage: 75 MCG/HR, CHANGES PATCH EVERY 3 DAYS
     Route: 062
  4. BACLOFEN. [Concomitant]
     Active Substance: BACLOFEN
     Indication: MUSCLE RELAXANT THERAPY
     Dosage: UNK, UNKNOWN
     Route: 065

REACTIONS (5)
  - Headache [Not Recovered/Not Resolved]
  - Wrong technique in product usage process [Recovered/Resolved]
  - Unevaluable event [Not Recovered/Not Resolved]
  - Vomiting [Recovered/Resolved]
  - Incorrect dose administered [Recovered/Resolved]

NARRATIVE: CASE EVENT DATE: 20160303
